FAERS Safety Report 10921844 (Version 2)
Quarter: 2015Q3

REPORT INFORMATION
  Report Type: Spontaneous
  Country: US (occurrence: US)
  Receive Date: 20150317
  Receipt Date: 20150721
  Transmission Date: 20151125
  Serious: Yes (Hospitalization, Other)
  Sender: FDA-Public Use
  Company Number: US-JNJFOC-20150309229

PATIENT
  Age: 46 Year
  Sex: Female

DRUGS (10)
  1. IMDUR [Concomitant]
     Active Substance: ISOSORBIDE MONONITRATE
     Route: 065
  2. XARELTO [Suspect]
     Active Substance: RIVAROXABAN
     Indication: PULMONARY EMBOLISM
     Route: 048
     Dates: start: 20130429, end: 20130624
  3. LASIX [Concomitant]
     Active Substance: FUROSEMIDE
     Route: 065
  4. COREG [Concomitant]
     Active Substance: CARVEDILOL
     Route: 065
  5. PRILOSEC [Concomitant]
     Active Substance: OMEPRAZOLE MAGNESIUM
     Route: 065
  6. XARELTO [Suspect]
     Active Substance: RIVAROXABAN
     Indication: PULMONARY EMBOLISM
     Route: 048
     Dates: start: 20130119, end: 20130327
  7. ICAR [Concomitant]
     Route: 065
  8. FERROSOL [Concomitant]
     Route: 065
  9. ASPIRIN. [Suspect]
     Active Substance: ASPIRIN
     Indication: ISCHAEMIC HEART DISEASE PROPHYLAXIS
     Route: 065
  10. DIOVAN [Concomitant]
     Active Substance: VALSARTAN
     Route: 065

REACTIONS (2)
  - Anaemia [Recovering/Resolving]
  - Vaginal haemorrhage [Recovering/Resolving]

NARRATIVE: CASE EVENT DATE: 20130311
